FAERS Safety Report 6865304-1 (Version None)
Quarter: 2010Q3

REPORT INFORMATION
  Report Type: 
  Country: None (occurrence: None)
  Receive Date: 20100721
  Receipt Date: 20080412
  Transmission Date: 20110219
  Serious: No
  Sender: FDA-Public Use
  Company Number: US-PFIZER INC-2008035270

PATIENT
  Sex: Female
  Weight: 132.27 kg

DRUGS (13)
  1. CHANTIX [Suspect]
     Indication: SMOKING CESSATION THERAPY
     Dates: start: 20080410
  2. HYDROXYCHLOROQUINE [Concomitant]
  3. XANAX [Concomitant]
     Indication: NERVOUSNESS
  4. REQUIP [Concomitant]
     Indication: RESTLESS LEGS SYNDROME
  5. LYRICA [Concomitant]
     Indication: NERVE INJURY
  6. COZAAR [Concomitant]
  7. POTASSIUM CHLORIDE [Concomitant]
  8. LASIX [Concomitant]
  9. GLIPIZIDE [Concomitant]
     Indication: TYPE 2 DIABETES MELLITUS
  10. ADVAIR DISKUS 100/50 [Concomitant]
     Indication: CHRONIC OBSTRUCTIVE PULMONARY DISEASE
  11. ALBUTEROL [Concomitant]
     Indication: CHRONIC OBSTRUCTIVE PULMONARY DISEASE
  12. NEXIUM [Concomitant]
     Indication: GASTROOESOPHAGEAL REFLUX DISEASE
  13. VALSARTAN [Concomitant]

REACTIONS (1)
  - HEADACHE [None]
